FAERS Safety Report 5922250-5 (Version None)
Quarter: 2008Q4

REPORT INFORMATION
  Report Type: 
  Country: None (occurrence: None)
  Receive Date: 20081017
  Receipt Date: 20081010
  Transmission Date: 20090506
  Serious: Yes (Other)
  Sender: FDA-Public Use
  Company Number: ES-AVENTIS-200819547GDDC

PATIENT
  Age: 64 Year
  Sex: Female
  Weight: 74.3 kg

DRUGS (4)
  1. GLIMEPIRIDE [Suspect]
     Indication: TYPE 2 DIABETES MELLITUS
     Route: 048
     Dates: start: 20051111
  2. DESLORATADINE [Suspect]
     Route: 048
     Dates: start: 20060120, end: 20060130
  3. ATORVASTATIN CALCIUM [Suspect]
     Indication: HYPERTENSION
     Route: 048
     Dates: start: 20021107
  4. ENALAPRIL MALEATE [Suspect]
     Indication: HYPERTENSION
     Route: 048
     Dates: start: 20021107

REACTIONS (1)
  - BLOOD CREATINE PHOSPHOKINASE BB INCREASED [None]
